FAERS Safety Report 7554051-9 (Version None)
Quarter: 2011Q2

REPORT INFORMATION
  Report Type: 
  Country: None (occurrence: None)
  Receive Date: 20110617
  Receipt Date: 20110607
  Transmission Date: 20111010
  Serious: Yes (Other)
  Sender: FDA-Public Use
  Company Number: BR-AMGEN-BRASP2011029019

PATIENT
  Sex: Female

DRUGS (1)
  1. NEULASTIM [Suspect]
     Indication: NEUTROPENIA
     Dosage: UNK
     Dates: start: 20110501

REACTIONS (2)
  - DRUG INEFFECTIVE [None]
  - NO ADVERSE EVENT [None]
